FAERS Safety Report 15457713 (Version 1)
Quarter: 2018Q4

REPORT INFORMATION
  Report Type: Other
  Country: DE (occurrence: DE)
  Receive Date: 20181003
  Receipt Date: 20181003
  Transmission Date: 20190204
  Serious: Yes (Other)
  Sender: FDA-Public Use
  Company Number: DE-LUPIN PHARMACEUTICALS INC.-2018-06763

PATIENT
  Age: 80 Year
  Sex: Female

DRUGS (25)
  1. QUETIAPINE. [Suspect]
     Active Substance: QUETIAPINE
     Dosage: 250 MG, QD
     Route: 048
     Dates: start: 20110912
  2. HALOPERIDOL. [Suspect]
     Active Substance: HALOPERIDOL
     Indication: PRODUCT USED FOR UNKNOWN INDICATION
     Dosage: 0.5 MG, QD
     Route: 048
     Dates: start: 20110906, end: 20110912
  3. QUETIAPINE. [Suspect]
     Active Substance: QUETIAPINE
     Dosage: 125 MG, QD
     Route: 048
     Dates: start: 20110830, end: 20110901
  4. QUETIAPINE. [Suspect]
     Active Substance: QUETIAPINE
     Dosage: 225 MG, QD
     Route: 048
     Dates: start: 20110906, end: 20110911
  5. LITHIUM. [Suspect]
     Active Substance: LITHIUM
     Dosage: 225 MG, QD
     Route: 048
     Dates: start: 20110726, end: 20110811
  6. DOMINAL                            /00002701/ [Suspect]
     Active Substance: ASPIRIN
     Dosage: 80 MG, QD
     Route: 048
     Dates: start: 20110826, end: 20110904
  7. DOMINAL                            /00002701/ [Suspect]
     Active Substance: ASPIRIN
     Dosage: 120 MG, QD
     Route: 048
     Dates: start: 20110905, end: 20110914
  8. SERTRALINE [Suspect]
     Active Substance: SERTRALINE HYDROCHLORIDE
     Indication: PRODUCT USED FOR UNKNOWN INDICATION
     Dosage: 50 MG, QD
     Route: 048
     Dates: start: 20110915, end: 20110919
  9. MACROGOL [Concomitant]
     Active Substance: POLYETHYLENE GLYCOLS
     Indication: PRODUCT USED FOR UNKNOWN INDICATION
     Dosage: 1 DF, QD
     Route: 065
  10. QUETIAPINE. [Suspect]
     Active Substance: QUETIAPINE
     Dosage: 175 MG, QD
     Route: 048
     Dates: start: 20110902, end: 20110905
  11. LITHIUM. [Suspect]
     Active Substance: LITHIUM
     Dosage: 450 MG, QD
     Route: 048
     Dates: start: 20110914, end: 20110921
  12. LITHIUM. [Suspect]
     Active Substance: LITHIUM
     Dosage: 675 MG, QD
     Route: 048
     Dates: start: 20110922
  13. AGOMELATIN [Suspect]
     Active Substance: AGOMELATINE
     Dosage: 50 MG, QD
     Route: 048
     Dates: start: 20110818, end: 20110914
  14. HALOPERIDOL. [Suspect]
     Active Substance: HALOPERIDOL
     Dosage: 1 MG, QD
     Route: 048
     Dates: start: 20110913, end: 20110914
  15. LISINOPRIL. [Concomitant]
     Active Substance: LISINOPRIL
     Indication: PRODUCT USED FOR UNKNOWN INDICATION
     Dosage: 20 MG, QD
     Route: 048
     Dates: start: 20110722, end: 20110810
  16. ALENDRONAT [Concomitant]
     Active Substance: ALENDRONATE SODIUM
     Indication: PRODUCT USED FOR UNKNOWN INDICATION
     Dosage: 70 MG, UNK
     Route: 048
  17. PHENPRO [Concomitant]
     Active Substance: PHENPROCOUMON
     Indication: PRODUCT USED FOR UNKNOWN INDICATION
     Dosage: 1.5 MG, QD
     Route: 048
     Dates: start: 20110722, end: 20111012
  18. LISINOPRIL. [Concomitant]
     Active Substance: LISINOPRIL
     Dosage: 10 MG, QD
     Route: 048
     Dates: start: 20110811, end: 20110826
  19. QUETIAPINE. [Suspect]
     Active Substance: QUETIAPINE
     Indication: PRODUCT USED FOR UNKNOWN INDICATION
     Dosage: 25 MG, QD
     Route: 048
     Dates: start: 20110822, end: 20110825
  20. QUETIAPINE. [Suspect]
     Active Substance: QUETIAPINE
     Dosage: 50 MG, QD
     Route: 048
     Dates: start: 20110826, end: 20110829
  21. SERTRALINE [Suspect]
     Active Substance: SERTRALINE HYDROCHLORIDE
     Dosage: 100 MG, QD
     Route: 048
     Dates: start: 20110920, end: 20120101
  22. LITHIUM. [Suspect]
     Active Substance: LITHIUM
     Indication: PRODUCT USED FOR UNKNOWN INDICATION
     Dosage: 450 MG, QD
     Route: 048
     Dates: start: 20110725, end: 20110725
  23. DOMINAL                            /00002701/ [Suspect]
     Active Substance: ASPIRIN
     Indication: PRODUCT USED FOR UNKNOWN INDICATION
     Dosage: 120 MG, QD
     Route: 048
     Dates: start: 20110722, end: 20110825
  24. LISINOPRIL. [Concomitant]
     Active Substance: LISINOPRIL
     Dosage: 5 MG, QD
     Route: 048
     Dates: start: 20110827, end: 20111012
  25. AGOMELATIN [Suspect]
     Active Substance: AGOMELATINE
     Indication: PRODUCT USED FOR UNKNOWN INDICATION
     Dosage: 25 MG, QD
     Route: 048
     Dates: start: 20110811, end: 20110817

REACTIONS (3)
  - Gait inability [Recovered/Resolved]
  - Dysphagia [Recovered/Resolved]
  - Salivary hypersecretion [Recovered/Resolved]

NARRATIVE: CASE EVENT DATE: 20110914
